FAERS Safety Report 7016949-X (Version None)
Quarter: 2010Q3

REPORT INFORMATION
  Report Type: 
  Country: None (occurrence: None)
  Receive Date: 20100927
  Receipt Date: 20100916
  Transmission Date: 20110219
  Serious: No
  Sender: FDA-Public Use
  Company Number: US-PFIZER INC-2010112042

PATIENT
  Sex: Female

DRUGS (1)
  1. LYRICA [Suspect]
     Indication: NEURALGIA
     Dosage: 300 MG, 4X/DAY
     Route: 048
     Dates: start: 20030101

REACTIONS (3)
  - FLATULENCE [None]
  - INCORRECT DOSE ADMINISTERED [None]
  - LACTOSE INTOLERANCE [None]
